FAERS Safety Report 17986739 (Version 2)
Quarter: 2020Q3

REPORT INFORMATION
  Report Type: Spontaneous
  Country: US (occurrence: US)
  Receive Date: 20200707
  Receipt Date: 20200709
  Transmission Date: 20201103
  Serious: Yes (Other)
  Sender: FDA-Public Use
  Company Number: US-ACCORD-186756

PATIENT
  Age: 63 Year
  Sex: Female
  Weight: 54.5 kg

DRUGS (4)
  1. DAPTIMYCIN ACCORD [Suspect]
     Active Substance: DAPTOMYCIN
     Indication: PRODUCT USED FOR UNKNOWN INDICATION
     Route: 042
     Dates: start: 20200604, end: 20200618
  2. ERTAPENEM/ERTAPENEM SODIUM [Concomitant]
     Active Substance: ERTAPENEM
     Route: 042
     Dates: start: 20200617, end: 20200618
  3. MEROPENEM. [Concomitant]
     Active Substance: MEROPENEM
     Dates: start: 20200603, end: 20200617
  4. FLUCONAZOLE. [Concomitant]
     Active Substance: FLUCONAZOLE
     Route: 048
     Dates: start: 20200610

REACTIONS (4)
  - Tremor [Recovered/Resolved]
  - Hypertension [Recovered/Resolved]
  - Body temperature decreased [Recovered/Resolved]
  - Cyanosis [Recovered/Resolved]

NARRATIVE: CASE EVENT DATE: 20200617
